FAERS Safety Report 12247366 (Version 1)
Quarter: 2016Q2

REPORT INFORMATION
  Report Type: Spontaneous
  Country: BR (occurrence: BR)
  Receive Date: 20160407
  Receipt Date: 20160407
  Transmission Date: 20160815
  Serious: Yes (Other)
  Sender: FDA-Public Use
  Company Number: BR-REGENERON PHARMACEUTICALS, INC.-2016-15052

PATIENT

DRUGS (3)
  1. EYLEA [Suspect]
     Active Substance: AFLIBERCEPT
     Indication: RETINAL DEGENERATION
     Dosage: UNK DOSAGE TO RIGHT EYE OD
     Route: 031
     Dates: start: 20150511
  2. EYLEA [Suspect]
     Active Substance: AFLIBERCEPT
     Indication: RETINAL PIGMENTATION
     Dosage: UNKNOWN DOSE IN RIGHT EYE OD
     Route: 031
     Dates: start: 20150313
  3. EYLEA [Suspect]
     Active Substance: AFLIBERCEPT
     Dosage: UNKNOWN DOSE TO LEFT EYE OS
     Route: 031
     Dates: start: 20150315

REACTIONS (2)
  - Retinal degeneration [Unknown]
  - Off label use [Unknown]

NARRATIVE: CASE EVENT DATE: 20150313
